FAERS Safety Report 5317476-8 (Version None)
Quarter: 2007Q2

REPORT INFORMATION
  Report Type: 
  Country: None (occurrence: None)
  Receive Date: 20070507
  Receipt Date: 20070426
  Transmission Date: 20071010
  Serious: Yes (Hospitalization, Other)
  Sender: FDA-Public Use
  Company Number: PHEH2007US06512

PATIENT
  Age: 85 Year
  Sex: Male

DRUGS (10)
  1. EXJADE [Suspect]
  2. REVLIMID [Suspect]
     Indication: MYELODYSPLASTIC SYNDROME
     Dosage: 10 MG, QD
     Dates: start: 20061012, end: 20070111
  3. REVLIMID [Suspect]
     Dosage: 5 MG, QD
     Dates: start: 20070111, end: 20070323
  4. TOBRAMYCIN [Concomitant]
     Indication: CHRONIC OBSTRUCTIVE PULMONARY DISEASE
  5. RESTORIL [Concomitant]
     Indication: INSOMNIA
     Dosage: UNK, PRN
  6. SONATA [Concomitant]
     Indication: INSOMNIA
     Dosage: UNK, PRN
  7. COMBIVENT                               /GFR/ [Concomitant]
     Indication: CHRONIC OBSTRUCTIVE PULMONARY DISEASE
  8. ADVAIR DISKUS 100/50 [Concomitant]
     Indication: CHRONIC OBSTRUCTIVE PULMONARY DISEASE
     Dosage: 250/50 MG BID
  9. MUCOMYST [Concomitant]
     Indication: CHRONIC OBSTRUCTIVE PULMONARY DISEASE
     Dosage: 20 % BID
  10. NASONEX [Concomitant]

REACTIONS (12)
  - ASTHENIA [None]
  - CARDIAC FAILURE [None]
  - DYSPNOEA [None]
  - MITRAL VALVE INCOMPETENCE [None]
  - PANCYTOPENIA [None]
  - PNEUMONIA [None]
  - PULMONARY HYPERTENSION [None]
  - RASH [None]
  - RASH MACULAR [None]
  - RENAL FAILURE CHRONIC [None]
  - TREMOR [None]
  - TRICUSPID VALVE INCOMPETENCE [None]
